APPROVED DRUG PRODUCT: URSODIOL
Active Ingredient: URSODIOL
Strength: 300MG
Dosage Form/Route: CAPSULE;ORAL
Application: A213555 | Product #001 | TE Code: AB
Applicant: CHARTWELL RX SCIENCES LLC
Approved: Aug 17, 2020 | RLD: No | RS: No | Type: RX